FAERS Safety Report 5844111-2 (Version None)
Quarter: 2008Q3

REPORT INFORMATION
  Report Type: 
  Country: None (occurrence: None)
  Receive Date: 20080731
  Receipt Date: 20080501
  Transmission Date: 20090109
  Serious: No
  Sender: FDA-Public Use
  Company Number: US200804006493

PATIENT
  Age: 51 Year
  Sex: Female
  Weight: 108.8 kg

DRUGS (12)
  1. BYETTA(SALINE (DEMO EXENATIDE PEN)) PEN,DISPOSABLE [Suspect]
     Indication: TYPE 2 DIABETES MELLITUS
     Dosage: 5 UG, 2/D, SUBCUTANEOUS ; 10 UG, 2/D, SUBCUTANEOUS ; 10 UG
     Route: 058
     Dates: start: 20070101, end: 20080401
  2. BYETTA(SALINE (DEMO EXENATIDE PEN)) PEN,DISPOSABLE [Suspect]
     Indication: TYPE 2 DIABETES MELLITUS
     Dosage: 5 UG, 2/D, SUBCUTANEOUS ; 10 UG, 2/D, SUBCUTANEOUS ; 10 UG
     Route: 058
     Dates: start: 20080401
  3. BYETTA [Suspect]
  4. METFORMIN HCL [Concomitant]
  5. LANTUS [Concomitant]
  6. LYRICA [Concomitant]
  7. EFFEXOR [Concomitant]
  8. OMEPRAZOLE [Concomitant]
  9. AMLODIPINE [Concomitant]
  10. SIMVASTATIN [Concomitant]
  11. ASPIRIN [Concomitant]
  12. EXENATIDE PEN, DISPOSABLE DEVICE (EXENATIDE PEN)) PEN,DISPOSABLE [Concomitant]

REACTIONS (11)
  - BLOOD GLUCOSE DECREASED [None]
  - BLOOD GLUCOSE INCREASED [None]
  - ELECTROMYOGRAM ABNORMAL [None]
  - INCORRECT DOSE ADMINISTERED [None]
  - NERVOUSNESS [None]
  - NEUROPATHY PERIPHERAL [None]
  - PAIN IN EXTREMITY [None]
  - POOR QUALITY SLEEP [None]
  - SWELLING [None]
  - VISUAL ACUITY REDUCED [None]
  - WEIGHT DECREASED [None]
